FAERS Safety Report 14327422 (Version 3)
Quarter: 2022Q1

REPORT INFORMATION
  Report Type: Spontaneous
  Country: PL (occurrence: PL)
  Receive Date: 20171227
  Receipt Date: 20220317
  Transmission Date: 20220423
  Serious: Yes (Hospitalization)
  Sender: FDA-Public Use
  Company Number: PL-POLPHARMA-291203

PATIENT
  Age: 57 Year
  Sex: Female
  Weight: 56 kg

DRUGS (9)
  1. IBANDRONIC ACID [Suspect]
     Active Substance: IBANDRONIC ACID
     Indication: Osteoporosis
     Dosage: 150 MILLIGRAM (1 MONTH)
     Route: 048
  2. KETOPROFEN [Concomitant]
     Active Substance: KETOPROFEN
     Indication: Pain
     Dosage: UNK
     Route: 030
  3. KETOPROFEN [Concomitant]
     Active Substance: KETOPROFEN
     Dosage: UNK
     Route: 048
  4. CHOLECALCIFEROL [Concomitant]
     Active Substance: CHOLECALCIFEROL
     Indication: Product used for unknown indication
     Dosage: 500 MILLIGRAM (VITAMIN D3 1000 U CALCIUM 500 MG)
     Route: 048
  5. VITAMIN D3 [Concomitant]
     Active Substance: CHOLECALCIFEROL
     Indication: Product used for unknown indication
     Dosage: 1250 INTERNATIONAL UNIT, ONCE A DAY
     Route: 048
  6. DEXKETOPROFEN [Concomitant]
     Active Substance: DEXKETOPROFEN
     Indication: Pain
     Dosage: UNK
     Route: 048
  7. NAPROXEN [Concomitant]
     Active Substance: NAPROXEN
     Indication: Pain
     Dosage: UNK
     Route: 048
  8. NAPROXEN [Concomitant]
     Active Substance: NAPROXEN
     Dosage: UNK
     Route: 030
  9. DEXKETOPROFEN [Concomitant]
     Active Substance: DEXKETOPROFEN
     Indication: Pain
     Dosage: UNK
     Route: 030

REACTIONS (5)
  - Femoral neck fracture [Unknown]
  - Fracture displacement [Unknown]
  - Pain in extremity [Unknown]
  - Groin pain [Unknown]
  - Femur fracture [Unknown]
